FAERS Safety Report 5651051-0 (Version None)
Quarter: 2008Q1

REPORT INFORMATION
  Report Type: 
  Country: None (occurrence: None)
  Receive Date: 20080305
  Receipt Date: 20080226
  Transmission Date: 20080703
  Serious: Yes (Other)
  Sender: FDA-Public Use
  Company Number: B0496657A

PATIENT
  Age: 1 Day
  Sex: Male
  Weight: 3.3 kg

DRUGS (2)
  1. RETROVIR [Suspect]
     Indication: ANTIVIRAL PROPHYLAXIS
     Dosage: 65MG SINGLE DOSE
     Route: 048
     Dates: start: 20071028, end: 20071028
  2. EPIVIR [Suspect]
     Indication: ANTIVIRAL PROPHYLAXIS
     Dosage: 65MG SINGLE DOSE
     Route: 048
     Dates: start: 20071028, end: 20071028

REACTIONS (5)
  - ACCIDENTAL OVERDOSE [None]
  - CIRCUMSTANCE OR INFORMATION CAPABLE OF LEADING TO MEDICATION ERROR [None]
  - INCORRECT DOSE ADMINISTERED [None]
  - NO ADVERSE EVENT [None]
  - WRONG TECHNIQUE IN DRUG USAGE PROCESS [None]
